FAERS Safety Report 5754274-5 (Version None)
Quarter: 2008Q2

REPORT INFORMATION
  Report Type: 
  Country: None (occurrence: None)
  Receive Date: 20080530
  Receipt Date: 20080522
  Transmission Date: 20081010
  Serious: Yes (Hospitalization)
  Sender: FDA-Public Use
  Company Number: US-GENENTECH-261413

PATIENT
  Sex: Female
  Weight: 72.5 kg

DRUGS (4)
  1. BEVACIZUMAB [Suspect]
     Indication: DRUG USE FOR UNKNOWN INDICATION
     Dosage: 5 MG/KG, Q2W
     Route: 042
     Dates: start: 20070724
  2. OXALIPLATIN [Suspect]
     Indication: COLON CANCER
     Dosage: UNK, Q2W
     Route: 042
     Dates: start: 20070724
  3. FLUOROURACIL [Concomitant]
     Indication: COLON CANCER
     Dosage: UNK, Q2W
     Route: 042
     Dates: start: 20070724
  4. ENOXAPARIN SODIUM [Concomitant]
     Indication: PULMONARY EMBOLISM
     Dosage: UNK, UNK
     Route: 058
     Dates: start: 20070924

REACTIONS (13)
  - ABDOMINAL PAIN [None]
  - BLOOD CULTURE POSITIVE [None]
  - BLOOD MAGNESIUM DECREASED [None]
  - BLOOD POTASSIUM DECREASED [None]
  - CATHETER SITE INFECTION [None]
  - FAILURE TO THRIVE [None]
  - ILEUS [None]
  - INTESTINAL MASS [None]
  - MASS [None]
  - NEUTROPENIA [None]
  - PULMONARY EMBOLISM [None]
  - SMALL INTESTINAL OBSTRUCTION [None]
  - STAPHYLOCOCCAL INFECTION [None]
